FAERS Safety Report 8284868 (Version 3)
Quarter: 2012Q4

REPORT INFORMATION
  Report Type: 
  Country: FR (occurrence: FR)
  Receive Date: 20111212
  Receipt Date: 20121022
  Transmission Date: 20130627
  Serious: Yes (Other)
  Sender: FDA-Public Use
  Company Number: FR-ASTRAZENECA-2011SE47702

PATIENT
  Age: 23049 Day
  Sex: Male
  Weight: 85 kg

DRUGS (7)
  1. VANDETANIB [Suspect]
     Indication: THYROID CANCER
     Route: 048
     Dates: start: 20110502
  2. LEVOTHYROX [Concomitant]
     Indication: HYPOTHYROIDISM
     Route: 048
     Dates: start: 20100101
  3. XANAX [Concomitant]
     Indication: ANXIETY
     Route: 048
     Dates: start: 20100101
  4. UN-ALFA [Concomitant]
  5. COAPROVEL [Concomitant]
  6. IMODIUM [Concomitant]
  7. PRIMPERAN [Concomitant]

REACTIONS (6)
  - Hypertension [Unknown]
  - Diarrhoea [Not Recovered/Not Resolved]
  - Asthenia [Unknown]
  - Folliculitis [Recovering/Resolving]
  - Corneal dystrophy [Not Recovered/Not Resolved]
  - Acne [Unknown]
